FAERS Safety Report 20247313 (Version 1)
Quarter: 2021Q4

REPORT INFORMATION
  Report Type: Spontaneous
  Country: FR (occurrence: FR)
  Receive Date: 20211229
  Receipt Date: 20211229
  Transmission Date: 20220303
  Serious: Yes (Congenital Anomaly, Other)
  Sender: FDA-Public Use
  Company Number: FR-ABBVIE-21K-056-4213955-00

PATIENT
  Sex: Male
  Weight: 2.84 kg

DRUGS (2)
  1. VALPROATE SODIUM [Suspect]
     Active Substance: VALPROATE SODIUM
     Indication: Product used for unknown indication
     Route: 064
  2. FOLIC ACID [Concomitant]
     Active Substance: FOLIC ACID
     Indication: Product used for unknown indication
     Dates: start: 200111

REACTIONS (24)
  - Eyelid ptosis [Unknown]
  - Prognathism [Unknown]
  - Hypertelorism [Unknown]
  - Congenital eye disorder [Unknown]
  - Dysmorphism [Unknown]
  - Myopia [Unknown]
  - Hypotonia [Unknown]
  - Psychomotor retardation [Unknown]
  - Developmental delay [Unknown]
  - Cerebral ventricle dilatation [Unknown]
  - Autism spectrum disorder [Unknown]
  - Disturbance in social behaviour [Unknown]
  - Sleep disorder [Unknown]
  - Anger [Unknown]
  - Behaviour disorder [Unknown]
  - Eating disorder [Unknown]
  - Language disorder [Unknown]
  - Intellectual disability [Unknown]
  - Kyphosis [Unknown]
  - Kidney malformation [Unknown]
  - Inguinal hernia [Unknown]
  - Scoliosis [Unknown]
  - Anxiety [Unknown]
  - Foetal exposure during pregnancy [Unknown]

NARRATIVE: CASE EVENT DATE: 20020630
